FAERS Safety Report 10243609 (Version 1)
Quarter: 2014Q2

REPORT INFORMATION
  Report Type: Spontaneous
  Country: US (occurrence: US)
  Receive Date: 20140618
  Receipt Date: 20140618
  Transmission Date: 20141212
  Serious: No
  Sender: FDA-Public Use
  Company Number: US-PFIZER INC-2014165410

PATIENT
  Age: 19 Year
  Sex: Male
  Weight: 47.17 kg

DRUGS (1)
  1. EFFEXOR XR [Suspect]
     Indication: MAJOR DEPRESSION
     Dosage: 37.5 MG, DAILY
     Dates: start: 20140612

REACTIONS (1)
  - Muscle twitching [Not Recovered/Not Resolved]
